FAERS Safety Report 23951554 (Version 2)
Quarter: 2024Q2

REPORT INFORMATION
  Report Type: Spontaneous
  Country: US (occurrence: US)
  Receive Date: 20240607
  Receipt Date: 20240607
  Transmission Date: 20240715
  Serious: Yes (Hospitalization)
  Sender: FDA-Public Use
  Company Number: US-PFIZER INC-202400186198

PATIENT
  Age: 74 Year
  Sex: Female

DRUGS (5)
  1. IBRANCE [Suspect]
     Active Substance: PALBOCICLIB
     Indication: Breast cancer metastatic
     Dosage: 1 PO DAILY FOR 3 WEEKS
     Route: 048
     Dates: end: 20200210
  2. IBRANCE [Suspect]
     Active Substance: PALBOCICLIB
     Dosage: 1 PO DAILY FOR 21 DAYS, REST 7 DAYS THEN RECYCLE
     Route: 048
     Dates: end: 20200930
  3. IBRANCE [Suspect]
     Active Substance: PALBOCICLIB
     Indication: Breast cancer metastatic
     Dosage: 1 P.O. Q. DAY FOR 21 DAYS, REST 7 DAYS THEN RECYCLE
     Route: 048
     Dates: end: 20210317
  4. IBRANCE [Suspect]
     Active Substance: PALBOCICLIB
     Dosage: 1 P.O. Q. DAY FOR 21 DAYS, REST 7 DAYS THEN RECYCLE
     Route: 048
     Dates: end: 20210611
  5. FULVESTRANT [Concomitant]
     Active Substance: FULVESTRANT
     Indication: Breast cancer metastatic
     Dosage: 500MG D1
     Dates: start: 20200414, end: 20220828

REACTIONS (2)
  - Pyelonephritis acute [Unknown]
  - Anaemia [Unknown]

NARRATIVE: CASE EVENT DATE: 20210330
